FAERS Safety Report 21959933 (Version 1)
Quarter: 2023Q1

REPORT INFORMATION
  Report Type: Spontaneous
  Country: US (occurrence: None)
  Receive Date: 20230203
  Receipt Date: 20230203
  Transmission Date: 20230418
  Serious: Yes (Other)
  Sender: FDA-Public Use
  Company Number: None

PATIENT
  Age: 43 Year
  Sex: Female
  Weight: 96.75 kg

DRUGS (1)
  1. IRON\VITAMINS [Suspect]
     Active Substance: IRON\VITAMINS
     Indication: Iron deficiency
     Dosage: OTHER QUANTITY : 1 TABLET(S);?FREQUENCY : DAILY;?
     Route: 048
     Dates: start: 20230117, end: 20230203

REACTIONS (5)
  - Productive cough [None]
  - Wheezing [None]
  - Sensation of foreign body [None]
  - Dysphagia [None]
  - Choking sensation [None]

NARRATIVE: CASE EVENT DATE: 20230203
